FAERS Safety Report 19245374 (Version 1)
Quarter: 2021Q2

REPORT INFORMATION
  Report Type: Spontaneous
  Country: US (occurrence: US)
  Receive Date: 20210511
  Receipt Date: 20210511
  Transmission Date: 20210717
  Serious: No
  Sender: FDA-Public Use
  Company Number: US-SA-2021SA152389

PATIENT
  Age: 59 Year
  Sex: Female

DRUGS (5)
  1. DUPIXENT [Suspect]
     Active Substance: DUPILUMAB
     Indication: DERMATITIS ATOPIC
     Dosage: 300 MG, QOW
     Route: 058
     Dates: start: 20210324, end: 202104
  2. COVID?19 VACCINE NOS. [Concomitant]
     Active Substance: COVID-19 VACCINE NOS
     Dosage: UNK
     Dates: start: 20210401, end: 20210401
  3. COVID?19 VACCINE NOS. [Concomitant]
     Active Substance: COVID-19 VACCINE NOS
     Dosage: UNK
     Dates: start: 20210422, end: 20210422
  4. ATORVASTATIN [Concomitant]
     Active Substance: ATORVASTATIN
  5. SOLIFENACIN [Concomitant]
     Active Substance: SOLIFENACIN

REACTIONS (3)
  - Skin swelling [Unknown]
  - COVID-19 immunisation [Unknown]
  - Rash [Unknown]

NARRATIVE: CASE EVENT DATE: 202104
